FAERS Safety Report 4636510-1 (Version None)
Quarter: 2005Q2

REPORT INFORMATION
  Report Type: 
  Country: None (occurrence: None)
  Receive Date: 20050414
  Receipt Date: 20050414
  Transmission Date: 20051028
  Serious: Yes (Disabling)
  Sender: FDA-Public Use
  Company Number: None

PATIENT
  Sex: Female
  Weight: 66.6788 kg

DRUGS (2)
  1. VYTORIN [Suspect]
     Indication: HYPERCHOLESTEROLAEMIA
     Dosage: 10/20     ONCE DAILY   ORAL
     Route: 048
     Dates: start: 20050107, end: 20050402
  2. METFORMIN    850 BID [Suspect]
     Indication: DIABETES MELLITUS
     Dosage: 850MG   BID  ORAL
     Route: 048
     Dates: start: 20050307, end: 20050402

REACTIONS (6)
  - ACTIVITIES OF DAILY LIVING IMPAIRED [None]
  - ASTHENIA [None]
  - CHROMATURIA [None]
  - DYSPNOEA EXERTIONAL [None]
  - DYSPNOEA PAROXYSMAL NOCTURNAL [None]
  - MYALGIA [None]
